FAERS Safety Report 23970673 (Version 2)
Quarter: 2024Q2

REPORT INFORMATION
  Report Type: Spontaneous
  Country: US (occurrence: US)
  Receive Date: 20240613
  Receipt Date: 20240614
  Transmission Date: 20240716
  Serious: No
  Sender: FDA-Public Use
  Company Number: US-JNJFOC-20240554880

PATIENT

DRUGS (1)
  1. MENS ROGAINE EXTRA STRENGTH [Suspect]
     Active Substance: MINOXIDIL
     Indication: Product used for unknown indication
     Dosage: ONCE DAILY
     Route: 061

REACTIONS (3)
  - Blister [Not Recovered/Not Resolved]
  - Skin exfoliation [Unknown]
  - Inappropriate schedule of product administration [Unknown]
